FAERS Safety Report 8996892 (Version 1)
Quarter: 2012Q4

REPORT INFORMATION
  Report Type: Spontaneous
  Country: PT (occurrence: None)
  Receive Date: 20121221
  Receipt Date: 20121221
  Transmission Date: 20130627
  Serious: Yes (Other)
  Sender: FDA-Public Use
  Company Number: ACET20120044

PATIENT
  Age: 8 Year
  Sex: Male

DRUGS (2)
  1. Q-PAP EXTRA STRENGTH TABLETS 500MG (PARACETAMOL) (500 MILLIGRAM, TABLETS) [Suspect]
     Route: 048
  2. Q-PAP EXTRA STRENGTH TABLETS 500MG (PARACETAMOL) (500 MILLIGRAM, TABLETS) [Suspect]
     Route: 048

REACTIONS (4)
  - Anaphylactic reaction [None]
  - Angioedema [None]
  - Hypotension [None]
  - Fatigue [None]
